FAERS Safety Report 8986280 (Version 1)
Quarter: 2012Q4

REPORT INFORMATION
  Report Type: 
  Country: US (occurrence: US)
  Receive Date: 20121227
  Receipt Date: 20121227
  Transmission Date: 20130627
  Serious: Yes (Hospitalization)
  Sender: FDA-Public Use
  Company Number: US-ELI_LILLY_AND_COMPANY-US201212001843

PATIENT
  Age: 85 Year
  Sex: Female

DRUGS (14)
  1. FORTEO [Suspect]
     Indication: OSTEOPOROSIS
     Dosage: 20 ug, qd
     Dates: start: 20120211
  2. FORTEO [Suspect]
     Dosage: 20 ug, qd
  3. OXYBUTYNIN [Concomitant]
  4. SIMVASTATIN [Concomitant]
     Dosage: UNK
  5. ALPRAZOLAM [Concomitant]
     Dosage: UNK
  6. OMEPRAZOLE [Concomitant]
     Dosage: UNK
  7. CALCIUM [Concomitant]
     Dosage: UNK
  8. MULTIVITAMIN [Concomitant]
     Dosage: UNK
  9. B COMPLEX [Concomitant]
     Dosage: UNK
  10. FOLIC ACID [Concomitant]
     Dosage: UNK
  11. VITAMIN D3 [Concomitant]
     Dosage: UNK
  12. BABY ASPIRIN [Concomitant]
     Dosage: UNK
  13. FISH OIL [Concomitant]
     Dosage: UNK
  14. GLUCOSE + CHONDROITIN [Concomitant]
     Dosage: UNK

REACTIONS (2)
  - Cerebrovascular accident [Recovering/Resolving]
  - Back pain [Unknown]
